FAERS Safety Report 7619253-1 (Version None)
Quarter: 2011Q3

REPORT INFORMATION
  Report Type: 
  Country: None (occurrence: None)
  Receive Date: 20110718
  Receipt Date: 20110708
  Transmission Date: 20111222
  Serious: Yes (Other)
  Sender: FDA-Public Use
  Company Number: US-ASTRAZENECA-2011SE41227

PATIENT
  Sex: Male

DRUGS (15)
  1. SEROQUEL [Suspect]
     Route: 048
  2. THERA-M [Concomitant]
     Route: 048
  3. KLOR-COR [Concomitant]
     Dosage: 20 MEQ PACK
  4. NAMENDA [Concomitant]
     Route: 048
  5. ISOSORBIDE MONONITRATE [Concomitant]
     Route: 048
  6. POLYETH GLYC POW [Concomitant]
     Dosage: MIX 17GM IN 80Z WATER OR JUICE DAILY
  7. HALOPER LAC [Concomitant]
     Dosage: INJECT 1 MG (0.2ML) INTRAMUSCULARLY EVERY 12 HOURS AS NEEDED
     Route: 030
  8. ASPIRIN [Concomitant]
     Route: 048
  9. FUROSEMIDE [Concomitant]
     Route: 048
  10. EXELON [Concomitant]
     Route: 061
  11. CARVEDILOL [Concomitant]
     Route: 048
  12. ISOSORBIDE MONONITRATE [Concomitant]
     Route: 048
  13. VITAMIN D [Concomitant]
     Route: 048
  14. FLEETS ENEMA [Concomitant]
     Dosage: AS REQUIRED
  15. MAPAP [Concomitant]
     Dosage: TWO TABLETS BY MOUTH EVERY 4 HOURS AS NEEDED PAIN
     Route: 048

REACTIONS (12)
  - CARDIOMEGALY [None]
  - PNEUMOTHORAX [None]
  - SYNCOPE [None]
  - BLISTER [None]
  - CARDIAC FAILURE CONGESTIVE [None]
  - DEMENTIA [None]
  - LEUKOCYTOSIS [None]
  - LACERATION [None]
  - ARTHRITIS BACTERIAL [None]
  - HYPERTENSION [None]
  - CORONARY ARTERY DISEASE [None]
  - CONTUSION [None]
